FAERS Safety Report 6042128-9 (Version None)
Quarter: 2009Q1

REPORT INFORMATION
  Report Type: 
  Country: None (occurrence: None)
  Receive Date: 20090116
  Receipt Date: 20090109
  Transmission Date: 20090719
  Serious: Yes (Hospitalization, Disabling, Other)
  Sender: FDA-Public Use
  Company Number: PHHY2008CA25082

PATIENT
  Sex: Female

DRUGS (11)
  1. ACLASTA [Suspect]
     Indication: OSTEOPOROSIS
     Dosage: 4 MG, ONCE/SINGLE
     Dates: start: 20080924, end: 20080924
  2. NARCOTICS [Concomitant]
  3. CORTEF [Concomitant]
     Dosage: 40 MG, BID
     Route: 048
  4. MIDODRINE [Concomitant]
     Dosage: 2.5 MG, TID
  5. CLONAZEPAM [Concomitant]
     Dosage: 3 DF, QHS
  6. PROCHLORPERAZINE [Concomitant]
  7. FLORINEF [Concomitant]
     Dosage: UNK
  8. RANITIDINE [Concomitant]
     Dosage: 300 MG, BID
     Route: 048
  9. PANTOPRAZOLE SODIUM [Concomitant]
     Dosage: 40 MG, BID
     Route: 048
  10. TRAZODONE HCL [Concomitant]
     Dosage: 2 DF, QHS
     Route: 048
  11. VITAMIN D [Concomitant]
     Dosage: 2000 UG PER DAY
     Route: 048

REACTIONS (9)
  - ARTHRALGIA [None]
  - BONE PAIN [None]
  - CHILLS [None]
  - CONFUSIONAL STATE [None]
  - DYSSTASIA [None]
  - HYPOAESTHESIA [None]
  - MUSCULOSKELETAL CHEST PAIN [None]
  - RIB FRACTURE [None]
  - WALKING DISABILITY [None]
